FAERS Safety Report 5019755-0 (Version None)
Quarter: 2006Q2

REPORT INFORMATION
  Report Type: 
  Country: None (occurrence: None)
  Receive Date: 20060607
  Receipt Date: 20060530
  Transmission Date: 20061013
  Serious: Yes (Other)
  Sender: FDA-Public Use
  Company Number: PHBS2006JP08053

PATIENT
  Age: 84 Year
  Sex: Male

DRUGS (4)
  1. TEGRETOL [Suspect]
     Indication: TRIGEMINAL NEURALGIA
     Dosage: 2 DF/DAY
     Route: 048
     Dates: start: 20051004
  2. ARICEPT [Suspect]
     Dosage: 3 MG/DAY
     Route: 048
     Dates: end: 20060509
  3. JUVELA NICOTINATE [Concomitant]
     Dosage: 3 DF/DAY
     Route: 048
     Dates: start: 20051102
  4. BUFFERIN [Concomitant]
     Dosage: 81 MG/DAY
     Route: 048
     Dates: start: 20060509

REACTIONS (7)
  - ALANINE AMINOTRANSFERASE INCREASED [None]
  - ASPARTATE AMINOTRANSFERASE INCREASED [None]
  - BLOOD LACTATE DEHYDROGENASE INCREASED [None]
  - BRADYCARDIA [None]
  - GAMMA-GLUTAMYLTRANSFERASE INCREASED [None]
  - LIVER DISORDER [None]
  - SINOATRIAL BLOCK [None]
